FAERS Safety Report 6256947-7 (Version None)
Quarter: 2009Q3

REPORT INFORMATION
  Report Type: 
  Country: None (occurrence: None)
  Receive Date: 20090701
  Receipt Date: 20090701
  Transmission Date: 20100115
  Serious: Yes (Life-Threatening)
  Sender: FDA-Public Use
  Company Number: None

PATIENT
  Age: 62 Year
  Sex: Female
  Weight: 65.5 kg

DRUGS (1)
  1. CYROSERVE DMSO 99.9% PURE STERILE, NONPYROGENIC SOLN ENDOTOXIN FREE BI [Suspect]
     Indication: STEM CELL TRANSPLANT
     Dosage: 32.6 ML ONCE IV
     Route: 042
     Dates: start: 20090421

REACTIONS (3)
  - DEPRESSED LEVEL OF CONSCIOUSNESS [None]
  - OXYGEN SATURATION DECREASED [None]
  - UNRESPONSIVE TO STIMULI [None]
